FAERS Safety Report 9382416 (Version 1)
Quarter: 2013Q3

REPORT INFORMATION
  Report Type: Spontaneous
  Country: JP (occurrence: JP)
  Receive Date: 20130703
  Receipt Date: 20130703
  Transmission Date: 20140515
  Serious: Yes (Hospitalization)
  Sender: FDA-Public Use
  Company Number: JP-ELI_LILLY_AND_COMPANY-JP201306008580

PATIENT
  Sex: Female

DRUGS (2)
  1. FORTEO [Suspect]
     Dosage: UNK
     Route: 058
     Dates: start: 201303
  2. CALCIUM [Concomitant]
     Dosage: UNK
     Route: 048

REACTIONS (2)
  - Cholelithiasis [Unknown]
  - Jaundice cholestatic [Unknown]
